FAERS Safety Report 6538692-3 (Version None)
Quarter: 2010Q1

REPORT INFORMATION
  Report Type: 
  Country: None (occurrence: None)
  Receive Date: 20100114
  Receipt Date: 20100114
  Transmission Date: 20100710
  Serious: Yes (Other)
  Sender: FDA-Public Use
  Company Number: None

PATIENT
  Age: 48 Year
  Sex: Female
  Weight: 74.8435 kg

DRUGS (3)
  1. ABILIFY [Suspect]
     Indication: BIPOLAR DISORDER
     Dosage: OD ORAL
     Route: 048
     Dates: start: 20070401, end: 20090701
  2. ABILIFY [Suspect]
     Indication: BORDERLINE PERSONALITY DISORDER
     Dosage: OD ORAL
     Route: 048
     Dates: start: 20070401, end: 20090701
  3. ABILIFY [Suspect]
     Indication: DEPRESSION
     Dosage: OD ORAL
     Route: 048
     Dates: start: 20070401, end: 20090701

REACTIONS (12)
  - CONFUSIONAL STATE [None]
  - CRYING [None]
  - DIZZINESS [None]
  - DYSARTHRIA [None]
  - FALL [None]
  - FEELING ABNORMAL [None]
  - GAIT DISTURBANCE [None]
  - INAPPROPRIATE AFFECT [None]
  - MUSCULOSKELETAL STIFFNESS [None]
  - SKIN LACERATION [None]
  - TREMOR [None]
  - WOUND [None]
